FAERS Safety Report 8816797 (Version 1)
Quarter: 2012Q4

REPORT INFORMATION
  Report Type: Spontaneous
  Country: DK (occurrence: None)
  Receive Date: 20121001
  Receipt Date: 20121001
  Transmission Date: 20130627
  Serious: Yes (Other)
  Sender: FDA-Public Use
  Company Number: 2012MA011692

PATIENT
  Age: 33 Year
  Sex: Male

DRUGS (1)
  1. CITALOPRAM HYDROBROMIDE [Suspect]
     Indication: ANXIETY
     Dates: start: 201208

REACTIONS (7)
  - Anxiety [None]
  - Hyperhidrosis [None]
  - Abdominal discomfort [None]
  - Abdominal distension [None]
  - Nausea [None]
  - Flatulence [None]
  - Drug withdrawal syndrome [None]
